FAERS Safety Report 17894499 (Version 6)
Quarter: 2021Q1

REPORT INFORMATION
  Report Type: Report from Study
  Country: US (occurrence: US)
  Receive Date: 20200615
  Receipt Date: 20210318
  Transmission Date: 20210419
  Serious: Yes (Other)
  Sender: FDA-Public Use
  Company Number: US-BIOVITRUM-2020US0962

PATIENT
  Sex: Female

DRUGS (2)
  1. KINERET [Suspect]
     Active Substance: ANAKINRA
     Indication: RHEUMATOID ARTHRITIS
     Route: 058
     Dates: start: 20191105
  2. KINERET [Suspect]
     Active Substance: ANAKINRA
     Route: 058
     Dates: start: 20201105

REACTIONS (18)
  - Urinary tract infection [Unknown]
  - Pain in extremity [Unknown]
  - Cataract [Unknown]
  - Malaise [Unknown]
  - Joint stiffness [Unknown]
  - Fall [Unknown]
  - Drug ineffective [Unknown]
  - Joint swelling [Unknown]
  - Headache [Unknown]
  - Fatigue [Unknown]
  - Abdominal pain [Unknown]
  - Skin discolouration [Unknown]
  - Glaucoma [Unknown]
  - Limb injury [Unknown]
  - Arthralgia [Unknown]
  - Eye injury [Unknown]
  - Burning sensation [Unknown]
  - Back pain [Unknown]
